FAERS Safety Report 4675302-4 (Version None)
Quarter: 2005Q2

REPORT INFORMATION
  Report Type: 
  Country: None (occurrence: None)
  Receive Date: 20050525
  Receipt Date: 20050512
  Transmission Date: 20051028
  Serious: Yes (Hospitalization)
  Sender: FDA-Public Use
  Company Number: 2005075607

PATIENT
  Age: 76 Year
  Sex: Male

DRUGS (7)
  1. ALDACTONE [Suspect]
     Indication: ILL-DEFINED DISORDER
     Dosage: 1 DOSE FORM (DAILY), ORAL
     Route: 048
  2. MORPHINE SULFATE [Suspect]
     Indication: OSTEOARTHRITIS
     Dosage: 60 MG (30 MG, BID), ORAL
     Route: 048
     Dates: start: 20050401, end: 20050403
  3. FUROSEMIDE [Suspect]
     Indication: ILL-DEFINED DISORDER
     Dosage: 2 DOSE FORMS (BID), ORAL
     Route: 048
  4. RAMIPRIL [Suspect]
     Indication: ILL-DEFINED DISORDER
     Dosage: 5 MG (2.5 MG, 2 IN 1 D), ORAL
     Route: 048
  5. METFORMIN HCL [Concomitant]
  6. FLUINDIONE (FLUINDIONE) [Concomitant]
  7. FENOFIBRATE [Concomitant]

REACTIONS (17)
  - BLOOD CREATINE PHOSPHOKINASE INCREASED [None]
  - BLOOD GLUCOSE INCREASED [None]
  - BLOOD PH DECREASED [None]
  - BLOOD POTASSIUM INCREASED [None]
  - BLOOD SODIUM DECREASED [None]
  - DRUG INTERACTION [None]
  - DRUG INTOLERANCE [None]
  - FLUID INTAKE REDUCED [None]
  - GAMMA-GLUTAMYLTRANSFERASE INCREASED [None]
  - GENERAL PHYSICAL HEALTH DETERIORATION [None]
  - HAEMATOCRIT DECREASED [None]
  - HAEMOGLOBIN DECREASED [None]
  - HYPOKINESIA [None]
  - MALNUTRITION [None]
  - RED BLOOD CELL COUNT ABNORMAL [None]
  - RENAL FAILURE ACUTE [None]
  - RESPIRATORY RATE INCREASED [None]
